FAERS Safety Report 5277969-9 (Version None)
Quarter: 2007Q1

REPORT INFORMATION
  Report Type: 
  Country: None (occurrence: None)
  Receive Date: 20070321
  Receipt Date: 20070227
  Transmission Date: 20070707
  Serious: Yes (Life-Threatening, Hospitalization)
  Sender: FDA-Public Use
  Company Number: 6030808

PATIENT
  Age: 43 Year
  Sex: Female

DRUGS (3)
  1. FLUOXETINE [Suspect]
     Indication: DRUG USE FOR UNKNOWN INDICATION
     Dosage: ORAL
     Route: 048
  2. VALPROIC ACID [Concomitant]
  3. ZOPICLONE (ZOPICLONE) [Concomitant]

REACTIONS (3)
  - OVERDOSE [None]
  - PULMONARY FIBROSIS [None]
  - VENTRICULAR TACHYCARDIA [None]
